FAERS Safety Report 12702925 (Version 1)
Quarter: 2016Q3

REPORT INFORMATION
  Report Type: Spontaneous
  Country: US (occurrence: US)
  Receive Date: 20160831
  Receipt Date: 20160831
  Transmission Date: 20161109
  Serious: No
  Sender: FDA-Public Use
  Company Number: US-GLAXOSMITHKLINE-US2016122181

PATIENT
  Sex: Male

DRUGS (10)
  1. SIMVASTIN [Concomitant]
     Active Substance: SIMVASTATIN
  2. FISH OIL [Concomitant]
     Active Substance: FISH OIL
  3. PANTOPRAZOLE [Concomitant]
     Active Substance: PANTOPRAZOLE SODIUM
  4. PRADAXA [Concomitant]
     Active Substance: DABIGATRAN ETEXILATE MESYLATE
  5. METOPROLOL. [Concomitant]
     Active Substance: METOPROLOL
  6. BREO ELLIPTA [Suspect]
     Active Substance: FLUTICASONE FUROATE\VILANTEROL TRIFENATATE
     Indication: CHRONIC OBSTRUCTIVE PULMONARY DISEASE
     Dosage: 1 PUFF(S), 1D
     Route: 055
     Dates: start: 201605
  7. NITROSTAT [Concomitant]
     Active Substance: NITROGLYCERIN
  8. VITAMIN D3 [Concomitant]
     Active Substance: CHOLECALCIFEROL
  9. ISOSORBIDE. [Concomitant]
     Active Substance: ISOSORBIDE
  10. VALSARTAN. [Concomitant]
     Active Substance: VALSARTAN

REACTIONS (1)
  - Pollakiuria [Not Recovered/Not Resolved]
